FAERS Safety Report 7343646-3 (Version None)
Quarter: 2011Q1

REPORT INFORMATION
  Report Type: 
  Country: None (occurrence: None)
  Receive Date: 20110310
  Receipt Date: 20100901
  Transmission Date: 20110831
  Serious: No
  Sender: FDA-Public Use
  Company Number: A0878876A

PATIENT
  Age: 65 Year
  Sex: Female

DRUGS (1)
  1. NICOTINE POLACRILEX [Suspect]
     Dates: start: 20100827, end: 20100831

REACTIONS (5)
  - PRODUCT QUALITY ISSUE [None]
  - NONSPECIFIC REACTION [None]
  - BUCCAL MUCOSAL ROUGHENING [None]
  - ORAL DISCOMFORT [None]
  - GINGIVAL PAIN [None]
